FAERS Safety Report 21535852 (Version 1)
Quarter: 2022Q4

REPORT INFORMATION
  Report Type: Spontaneous
  Country: US (occurrence: None)
  Receive Date: 20221031
  Receipt Date: 20221031
  Transmission Date: 20230113
  Serious: Yes (Other)
  Sender: FDA-Public Use
  Company Number: None

PATIENT

DRUGS (1)
  1. CASIRIVIMAB\IMDEVIMAB [Suspect]
     Active Substance: CASIRIVIMAB\IMDEVIMAB

REACTIONS (6)
  - COVID-19 [None]
  - Infusion related reaction [None]
  - Chest pain [None]
  - Nausea [None]
  - Vomiting [None]
  - Oxygen saturation decreased [None]

NARRATIVE: CASE EVENT DATE: 20210706
